FAERS Safety Report 7584933-3 (Version None)
Quarter: 2011Q2

REPORT INFORMATION
  Report Type: 
  Country: None (occurrence: None)
  Receive Date: 20110630
  Receipt Date: 20110616
  Transmission Date: 20111010
  Serious: Yes (Congenital Anomaly, Other)
  Sender: FDA-Public Use
  Company Number: RU-ELI_LILLY_AND_COMPANY-RU201106004558

PATIENT
  Weight: 3.6 kg

DRUGS (4)
  1. CYMBALTA [Suspect]
     Dosage: 60 MG, EACH MORNING
     Route: 064
  2. CYMBALTA [Suspect]
     Indication: DEPRESSION
     Dosage: 60 MG, EACH MORNING
     Route: 064
  3. HYDROXYZINE [Concomitant]
     Dosage: UNK
     Route: 064
  4. HYDROXYZINE [Concomitant]
     Dosage: UNK
     Route: 064

REACTIONS (2)
  - DRUG EXPOSURE DURING PREGNANCY [None]
  - CEREBRAL PALSY [None]
